FAERS Safety Report 19815925 (Version 1)
Quarter: 2021Q3

REPORT INFORMATION
  Report Type: Spontaneous
  Country: US (occurrence: US)
  Receive Date: 20210909
  Receipt Date: 20210909
  Transmission Date: 20211014
  Serious: No
  Sender: FDA-Public Use
  Company Number: US-009507513-2109USA002198

PATIENT
  Age: 70 Year
  Sex: Female

DRUGS (3)
  1. KEYTRUDA [Suspect]
     Active Substance: PEMBROLIZUMAB
  2. LENVATINIB MESYLATE [Suspect]
     Active Substance: LENVATINIB MESYLATE
     Dosage: 20 MILLIGRAM, DAILY
     Route: 048
  3. AVASTIN [SIMVASTATIN] [Suspect]
     Active Substance: SIMVASTATIN

REACTIONS (4)
  - Blood creatinine increased [Unknown]
  - Hypersensitivity [Unknown]
  - Headache [Unknown]
  - Nausea [Unknown]
